FAERS Safety Report 6385182-7 (Version None)
Quarter: 2009Q4

REPORT INFORMATION
  Report Type: 
  Country: None (occurrence: None)
  Receive Date: 20091002
  Receipt Date: 20080918
  Transmission Date: 20100525
  Serious: No
  Sender: FDA-Public Use
  Company Number: US-ASTRAZENECA-2006UW19004

PATIENT
  Age: 70 Year
  Sex: Female
  Weight: 70.3 kg

DRUGS (10)
  1. ARIMIDEX [Suspect]
     Indication: BREAST CANCER RECURRENT
     Route: 048
     Dates: start: 20060501
  2. ZETIA [Concomitant]
  3. LASIX [Concomitant]
  4. ZOLOFT [Concomitant]
  5. FOSAMAX [Concomitant]
  6. PRINIVIL [Concomitant]
  7. ELAVIL [Concomitant]
  8. LIPITOR [Concomitant]
  9. NORVASC [Concomitant]
  10. ASPIRIN [Concomitant]

REACTIONS (3)
  - HOT FLUSH [None]
  - LIBIDO DECREASED [None]
  - PHOTOPHOBIA [None]
